FAERS Safety Report 8257599-7 (Version None)
Quarter: 2012Q2

REPORT INFORMATION
  Report Type: 
  Country: None (occurrence: None)
  Receive Date: 20120403
  Receipt Date: 20120327
  Transmission Date: 20120825
  Serious: Yes (Hospitalization)
  Sender: FDA-Public Use
  Company Number: PHHY2012US023942

PATIENT
  Age: 25 Year
  Sex: Female

DRUGS (10)
  1. OXYCODONE HCL [Suspect]
     Indication: PAIN
     Dosage: 10 MG, BID
  2. OXYCODONE HCL [Suspect]
     Dosage: 5-10 MG EVERY FOUR HOURS, PRN
  3. SODIUM OXYBATE [Suspect]
     Dosage: 4.5 G, MAXIMAL DOSE OF 7.5 G
  4. SODIUM OXYBATE [Suspect]
     Dosage: 3 G, IN DIVIDED DOSES
  5. BUSPIRONE HCL [Concomitant]
     Indication: ANXIETY
  6. DIAZEPAM [Suspect]
     Indication: MUSCLE SPASMS
     Dosage: 2 MG, TID
  7. DIAZEPAM [Suspect]
     Dosage: FOUR DOSESS OF 2 MG
  8. SODIUM OXYBATE [Suspect]
     Indication: NARCOLEPSY
     Dosage: 9 G,
  9. SODIUM OXYBATE [Suspect]
     Dosage: 5 G, ON 4 DAYS PER WEEK
  10. SODIUM OXYBATE [Suspect]
     Dosage: 6 G, NIGHTLY

REACTIONS (8)
  - CONFUSIONAL STATE [None]
  - PSYCHOTIC DISORDER [None]
  - HALLUCINATION [None]
  - PARAESTHESIA [None]
  - ANXIETY [None]
  - ABNORMAL BEHAVIOUR [None]
  - DELUSION [None]
  - ILLOGICAL THINKING [None]
